FAERS Safety Report 7980893-1 (Version None)
Quarter: 2011Q4

REPORT INFORMATION
  Report Type: 
  Country: None (occurrence: None)
  Receive Date: 20111215
  Receipt Date: 20111206
  Transmission Date: 20120403
  Serious: Yes (Life-Threatening, Other)
  Sender: FDA-Public Use
  Company Number: FR-ROXANE LABORATORIES, INC.-2011-RO-01763RO

PATIENT
  Age: 54 Year
  Sex: Female

DRUGS (16)
  1. MYCOPHENOLATE MOFETIL [Suspect]
     Indication: IMMUNOSUPPRESSANT DRUG THERAPY
     Dosage: 1000 MG
     Dates: end: 20090213
  2. ADVAGRAFT [Suspect]
     Indication: IMMUNOSUPPRESSANT DRUG THERAPY
     Dosage: 4.5 MG
     Route: 048
     Dates: end: 20090206
  3. ADVAGRAFT [Suspect]
     Dosage: 2 MG
     Route: 048
     Dates: start: 20090206, end: 20090213
  4. AMPHOTERICIN B [Suspect]
     Indication: FUNGAL OESOPHAGITIS
     Route: 048
  5. TAZOCILLIN [Suspect]
     Dates: start: 20090126
  6. PROGRAF [Suspect]
     Indication: IMMUNOSUPPRESSANT DRUG THERAPY
  7. CIPROFLOXACIN [Suspect]
     Dates: start: 20090126
  8. PREDNISONE TAB [Suspect]
     Indication: IMMUNOSUPPRESSANT DRUG THERAPY
     Dosage: 5 MG
  9. VALGANCICLOVIR [Suspect]
     Indication: ANTIVIRAL PROPHYLAXIS
     Dosage: 450 MG
  10. AMPHOTERICIN B [Suspect]
     Route: 042
     Dates: start: 20090206
  11. POSACONAZOLE [Suspect]
     Indication: PROPHYLAXIS AGAINST TRANSPLANT REJECTION
     Dosage: 800 MG
     Dates: start: 20090213, end: 20090226
  12. FLUINDIONE [Suspect]
     Indication: GRAFT THROMBOSIS
     Dosage: 20 MG
     Route: 048
  13. AMLODIPINE [Suspect]
     Indication: HYPERTENSION
     Dosage: 5 MG
  14. CELIPROLOL [Suspect]
     Indication: HYPERTENSION
     Dosage: 200 MG
  15. REPAGLINIDE [Suspect]
     Indication: DIABETES MELLITUS
     Dosage: 3 MG
  16. AMOXICILLIN [Suspect]
     Indication: ANTIBIOTIC THERAPY
     Dates: start: 20090120, end: 20090126

REACTIONS (5)
  - ZYGOMYCOSIS [None]
  - RENAL FAILURE [None]
  - ANAEMIA [None]
  - SINUSITIS [None]
  - NEUTROPENIA [None]
